FAERS Safety Report 12784937 (Version 1)
Quarter: 2016Q3

REPORT INFORMATION
  Report Type: Spontaneous
  Country: US (occurrence: US)
  Receive Date: 20160927
  Receipt Date: 20160927
  Transmission Date: 20161109
  Serious: No
  Sender: FDA-Public Use
  Company Number: US-IGSA-GTI003313

PATIENT
  Age: 82 Year
  Sex: Male
  Weight: 63 kg

DRUGS (17)
  1. PROSCAR [Concomitant]
     Active Substance: FINASTERIDE
  2. BUMEX [Concomitant]
     Active Substance: BUMETANIDE
     Dates: start: 20160915
  3. FLUTICASONE W/SALMETEROL XINAFOATE [Concomitant]
  4. ATIVAN [Concomitant]
     Active Substance: LORAZEPAM
  5. ECOTRIN [Concomitant]
     Active Substance: ASPIRIN
  6. PROVENTIL [Concomitant]
     Active Substance: ALBUTEROL
  7. ATROVENT [Concomitant]
     Active Substance: IPRATROPIUM BROMIDE
  8. AZITHROMYCIN ANHYDROUS. [Concomitant]
     Active Substance: AZITHROMYCIN ANHYDROUS
  9. PROLASTIN-C [Suspect]
     Active Substance: .ALPHA.1-PROTEINASE INHIBITOR HUMAN
     Indication: ALPHA-1 ANTI-TRYPSIN DEFICIENCY
     Route: 042
     Dates: start: 20160917, end: 20160917
  10. PROLASTIN-C [Suspect]
     Active Substance: .ALPHA.1-PROTEINASE INHIBITOR HUMAN
     Indication: ALPHA-1 ANTI-TRYPSIN DEFICIENCY
     Route: 042
     Dates: start: 20110214
  11. CELEBREX [Concomitant]
     Active Substance: CELECOXIB
  12. CARDURA [Concomitant]
     Active Substance: DOXAZOSIN MESYLATE
  13. ZOCOR [Concomitant]
     Active Substance: SIMVASTATIN
  14. CENTRUM SILVER /02363801/ [Concomitant]
     Active Substance: MINERALS\VITAMINS
  15. PROLASTIN-C [Suspect]
     Active Substance: .ALPHA.1-PROTEINASE INHIBITOR HUMAN
     Indication: ALPHA-1 ANTI-TRYPSIN DEFICIENCY
     Route: 042
     Dates: start: 20150613
  16. PROCRIT [Concomitant]
     Active Substance: ERYTHROPOIETIN
     Dates: start: 20150613
  17. SYNTHROID [Concomitant]
     Active Substance: LEVOTHYROXINE SODIUM

REACTIONS (4)
  - Hot flush [Recovered/Resolved]
  - Hypoaesthesia [Recovered/Resolved]
  - Hypoaesthesia [Recovered/Resolved]
  - Hypoaesthesia [Recovered/Resolved]

NARRATIVE: CASE EVENT DATE: 20150613
